FAERS Safety Report 9339935 (Version 3)
Quarter: 2014Q1

REPORT INFORMATION
  Report Type: Spontaneous
  Country: US (occurrence: US)
  Receive Date: 20130610
  Receipt Date: 20140310
  Transmission Date: 20141002
  Serious: Yes (Other)
  Sender: FDA-Public Use
  Company Number: US-ASTELLAS-2013US003116

PATIENT
  Age: 50 Year
  Sex: Male
  Weight: 98 kg

DRUGS (21)
  1. XTANDI [Suspect]
     Indication: PROSTATE CANCER
     Dosage: 160 MG, UID/QD
     Route: 048
     Dates: start: 20130213, end: 20131001
  2. XTANDI [Suspect]
     Dosage: 160 MG, UID/QD
     Route: 048
     Dates: start: 20130213, end: 20130228
  3. XTANDI [Suspect]
     Dosage: 20 MG, UID/QD
     Route: 048
     Dates: start: 20130306
  4. XTANDI [Suspect]
     Dosage: 30 MG, UID/QD
     Route: 048
     Dates: start: 201303
  5. XTANDI [Suspect]
     Dosage: 40 MG, UID/QD
     Route: 048
     Dates: start: 201304
  6. XTANDI [Suspect]
     Dosage: 160 MG, UID/QD
     Route: 048
  7. TAMSULOSIN [Concomitant]
     Indication: PRODUCT USED FOR UNKNOWN INDICATION
     Dosage: UNK
     Route: 065
  8. ZOMETA [Concomitant]
     Indication: PROSTATE CANCER
     Dosage: UNK
     Route: 041
  9. LUPRON [Concomitant]
     Indication: PROSTATE CANCER
     Dosage: UNK
     Route: 030
  10. OMEPRAZOLE [Concomitant]
     Indication: PRODUCT USED FOR UNKNOWN INDICATION
     Dosage: 20 MG, UID/QD
     Route: 065
  11. HYDROCHLOROTHIAZIDE [Concomitant]
     Indication: PRODUCT USED FOR UNKNOWN INDICATION
     Dosage: 25 MG, UID/QD
     Route: 065
  12. CALTRATE                           /07357001/ [Concomitant]
     Indication: PRODUCT USED FOR UNKNOWN INDICATION
     Dosage: 600 MG, UID/QD
     Route: 065
  13. PREDNISONE [Concomitant]
     Indication: PRODUCT USED FOR UNKNOWN INDICATION
     Dosage: UNK
     Route: 048
  14. PREDNISONE [Concomitant]
     Dosage: 3 MG, UID/QD
     Route: 065
  15. LISINOPRIL [Concomitant]
     Indication: PRODUCT USED FOR UNKNOWN INDICATION
     Dosage: 10 MG, UID/QD
     Route: 065
  16. ZOFRAN                             /00955301/ [Concomitant]
     Indication: PRODUCT USED FOR UNKNOWN INDICATION
     Dosage: UNK
     Route: 048
  17. VICODIN [Concomitant]
     Indication: PRODUCT USED FOR UNKNOWN INDICATION
     Dosage: 5/325 PRN
     Route: 065
  18. LOPERAMIDE [Concomitant]
     Indication: PRODUCT USED FOR UNKNOWN INDICATION
     Dosage: UNK
     Route: 065
  19. AZITHROMYCIN [Concomitant]
     Indication: PRODUCT USED FOR UNKNOWN INDICATION
     Dosage: 280 MG, UID/QD
     Route: 048
  20. CEFPODOXIME [Concomitant]
     Indication: PRODUCT USED FOR UNKNOWN INDICATION
     Dosage: 200 MG, BID
     Route: 065
  21. SUDAFED                            /00076302/ [Concomitant]
     Indication: NASOPHARYNGITIS
     Dosage: UNK
     Route: 065

REACTIONS (6)
  - Drug ineffective [Unknown]
  - Dermatitis [Recovering/Resolving]
  - Dizziness [Unknown]
  - Bone pain [Recovered/Resolved]
  - Arthralgia [Recovered/Resolved]
  - Malignant neoplasm progression [Unknown]
